FAERS Safety Report 6896543-1 (Version None)
Quarter: 2010Q3

REPORT INFORMATION
  Report Type: 
  Country: None (occurrence: None)
  Receive Date: 20100802
  Receipt Date: 20100727
  Transmission Date: 20110219
  Serious: Yes (Death, Hospitalization, Disabling, Other)
  Sender: FDA-Public Use
  Company Number: PHHY2010JP44881

PATIENT
  Sex: Female
  Weight: 52 kg

DRUGS (12)
  1. AFINITOR [Suspect]
     Indication: METASTATIC RENAL CELL CARCINOMA
     Dosage: 10 MG DAILY
     Route: 048
     Dates: start: 20100604, end: 20100629
  2. INTERFERON ALFA [Concomitant]
     Dosage: 3000000IU
     Route: 048
     Dates: start: 20081217, end: 20100605
  3. DIHYDROCODEINE PHOSPHATE [Concomitant]
     Indication: METASTATIC RENAL CELL CARCINOMA
     Dosage: 3 G
     Route: 048
     Dates: start: 20100511
  4. DECADRON [Concomitant]
     Dosage: 2 MG, UNK
     Route: 048
     Dates: start: 20100513
  5. BLOPRESS [Concomitant]
     Dosage: 12 MG, UNK
     Route: 048
  6. ALLELOCK [Concomitant]
     Dosage: 5 MG, UNK
     Route: 048
  7. LUPRAC [Concomitant]
     Dosage: 8 MG, UNK
     Route: 048
  8. OPALMON [Concomitant]
     Dosage: 10 UG, UNK
     Route: 048
  9. OXYCONTIN [Concomitant]
     Indication: METASTATIC RENAL CELL CARCINOMA
     Dosage: 10 MG, UNK
     Route: 048
     Dates: start: 20100517
  10. LOXONIN [Concomitant]
     Indication: METASTATIC RENAL CELL CARCINOMA
     Dosage: 180 MG, UNK
     Route: 048
     Dates: start: 20100517
  11. GLUFAST [Concomitant]
     Dosage: 30 MG, UNK
     Route: 048
     Dates: start: 20100601, end: 20100621
  12. SEIBULE [Concomitant]
     Dosage: 150 MG, UNK
     Route: 048
     Dates: start: 20100612

REACTIONS (2)
  - DIABETES MELLITUS [None]
  - INTERSTITIAL LUNG DISEASE [None]
